FAERS Safety Report 7853985-5 (Version None)
Quarter: 2011Q4

REPORT INFORMATION
  Report Type: 
  Country: None (occurrence: None)
  Receive Date: 20111026
  Receipt Date: 20111021
  Transmission Date: 20120403
  Serious: Yes (Death, Hospitalization, Other)
  Sender: FDA-Public Use
  Company Number: US-PFIZER INC-2010057678

PATIENT
  Sex: Female

DRUGS (2)
  1. DILANTIN [Suspect]
     Dosage: 100 MG, 3X/DAY (EVERY 8 HOURS)
     Route: 042
     Dates: start: 20080305
  2. DILANTIN [Suspect]
     Dosage: UNK
     Route: 048

REACTIONS (1)
  - STEVENS-JOHNSON SYNDROME [None]
